FAERS Safety Report 6470609-2 (Version None)
Quarter: 2009Q4

REPORT INFORMATION
  Report Type: 
  Country: None (occurrence: None)
  Receive Date: 20091203
  Receipt Date: 20090317
  Transmission Date: 20100525
  Serious: No
  Sender: FDA-Public Use
  Company Number: US-ABBOTT-09P-163-0563250-00

PATIENT
  Sex: Female
  Weight: 65.83 kg

DRUGS (7)
  1. MERIDIA [Suspect]
     Indication: WEIGHT DECREASED
     Dates: start: 20070701
  2. ATENOLOL [Concomitant]
     Indication: DRUG USE FOR UNKNOWN INDICATION
  3. METFORMIN HCL [Concomitant]
     Indication: DRUG USE FOR UNKNOWN INDICATION
  4. LIPITOR [Concomitant]
     Indication: DRUG USE FOR UNKNOWN INDICATION
  5. NORVASC [Concomitant]
     Indication: DRUG USE FOR UNKNOWN INDICATION
  6. FOLTEX [Concomitant]
     Indication: DRUG USE FOR UNKNOWN INDICATION
  7. EVISTA [Concomitant]
     Indication: DRUG USE FOR UNKNOWN INDICATION

REACTIONS (2)
  - DRUG EFFECT DECREASED [None]
  - LACK OF SATIETY [None]
